FAERS Safety Report 9162085 (Version 1)
Quarter: 2013Q1

REPORT INFORMATION
  Report Type: Spontaneous
  Country: JP (occurrence: JP)
  Receive Date: 20130314
  Receipt Date: 20130314
  Transmission Date: 20140127
  Serious: Yes (Hospitalization, Other)
  Sender: FDA-Public Use
  Company Number: JP-009507513-1303JPN005127

PATIENT
  Age: 33 Year
  Sex: Male

DRUGS (3)
  1. TEMODAL [Suspect]
     Indication: MALIGNANT GLIOMA
     Dosage: 75 MG/M2, UNK
     Route: 048
  2. INTERFERON BETA [Concomitant]
     Indication: MALIGNANT GLIOMA
     Dosage: 300 MIU/DAY, ADMINISTERED ON ALTERNATE DAYS
  3. BETAMETHASONE [Concomitant]
     Indication: MALIGNANT GLIOMA
     Dosage: 2 MG/DAY WITH GLYCEROL INFUSION
     Route: 048

REACTIONS (1)
  - Herpes simplex encephalitis [Recovered/Resolved with Sequelae]
